FAERS Safety Report 6022475-7 (Version None)
Quarter: 2008Q4

REPORT INFORMATION
  Report Type: 
  Country: None (occurrence: None)
  Receive Date: 20081223
  Receipt Date: 20081212
  Transmission Date: 20090506
  Serious: Yes (Other)
  Sender: FDA-Public Use
  Company Number: ADR3022008

PATIENT
  Sex: Female

DRUGS (3)
  1. ALENDRONATE TABLETS 70 MG (UNKNOWN MANUFACTURER) [Suspect]
     Indication: OSTEOPOROSIS
     Dosage: 70 MG WEEKLY
     Dates: start: 20050221
  2. OMEPRAZOLE [Concomitant]
  3. CALCICHEW (CALCIUM CARBONATE) [Concomitant]

REACTIONS (2)
  - ABDOMINAL DISTENSION [None]
  - ABDOMINAL PAIN UPPER [None]
